FAERS Safety Report 25955881 (Version 2)
Quarter: 2025Q4

REPORT INFORMATION
  Report Type: Spontaneous
  Country: CN (occurrence: CN)
  Receive Date: 20251024
  Receipt Date: 20251028
  Transmission Date: 20260117
  Serious: Yes (Life-Threatening, Hospitalization)
  Sender: ASTELLAS
  Company Number: CN-ASTELLAS-2025-AER-058246

PATIENT
  Age: 89 Year
  Sex: Female

DRUGS (2)
  1. PADCEV [Suspect]
     Active Substance: ENFORTUMAB VEDOTIN-EJFV
     Indication: Transitional cell carcinoma
     Dosage: DAY 1
     Route: 042
     Dates: start: 20250927, end: 20251004
  2. TISLELIZUMAB [Suspect]
     Active Substance: TISLELIZUMAB
     Indication: Transitional cell carcinoma
     Route: 042
     Dates: start: 20250927, end: 20251004

REACTIONS (3)
  - Oesophageal haemorrhage [Not Recovered/Not Resolved]
  - Pneumonia [Recovering/Resolving]
  - Alopecia [Recovering/Resolving]

NARRATIVE: CASE EVENT DATE: 20250928
